FAERS Safety Report 26181178 (Version 1)
Quarter: 2025Q4

REPORT INFORMATION
  Report Type: Spontaneous
  Country: US (occurrence: US)
  Receive Date: 20251221
  Receipt Date: 20251221
  Transmission Date: 20260118
  Serious: No
  Sender: AZURITY PHARMACEUTICALS
  Company Number: US-AZURITY-2025BTE00315

PATIENT
  Age: 75 Year
  Sex: Female
  Weight: 56.699 kg

DRUGS (2)
  1. SUTAB [Suspect]
     Active Substance: MAGNESIUM SULFATE\POTASSIUM CHLORIDE\SODIUM SULFATE
     Indication: Endoscopy upper gastrointestinal tract
     Dosage: UNK
     Dates: start: 202505
  2. SUTAB [Suspect]
     Active Substance: MAGNESIUM SULFATE\POTASSIUM CHLORIDE\SODIUM SULFATE
     Indication: Colonoscopy

REACTIONS (3)
  - Illness [Not Recovered/Not Resolved]
  - Asthenia [Not Recovered/Not Resolved]
  - Vomiting [Not Recovered/Not Resolved]

NARRATIVE: CASE EVENT DATE: 20250513
